FAERS Safety Report 6627038-8 (Version None)
Quarter: 2010Q1

REPORT INFORMATION
  Report Type: 
  Country: None (occurrence: None)
  Receive Date: 20100308
  Receipt Date: 20100216
  Transmission Date: 20100710
  Serious: Yes (Death)
  Sender: FDA-Public Use
  Company Number: KV200900832

PATIENT
  Age: 35 Year
  Sex: Female
  Weight: 90.7 kg

DRUGS (31)
  1. MORPHINE SULFATE [Suspect]
     Indication: PAIN
     Dosage: 60 MG, QD
     Dates: start: 20061106
  2. MORPHINE SULFATE [Suspect]
     Indication: PAIN
  3. MORPHINE SULFATE [Suspect]
     Indication: PAIN
     Dosage: 15 MG, QID, ORAL
     Route: 048
     Dates: start: 20061204, end: 20061227
  4. MORPHINE SULFATE [Suspect]
     Indication: PAIN
     Dosage: 15 MG EVERY 4 HOURS, NOT TO EXCEED 2 IN 24 HOURS, ORAL
     Route: 048
     Dates: start: 20061106, end: 20061204
  5. SUBOXONE [Concomitant]
  6. DILAUDID [Concomitant]
  7. ONDANSETRON [Concomitant]
  8. LYRICA [Concomitant]
  9. ZOLPIDEM [Concomitant]
  10. CLONIDINE [Concomitant]
  11. PRILOSEC /00661201/ (OMEPRAZOLE) [Concomitant]
  12. HYDROMORPHONE HCL [Concomitant]
  13. PROCHLORPERAZINE MALEATE [Concomitant]
  14. CYANOCOBALAMIN [Concomitant]
  15. LORAZEPAM [Concomitant]
  16. TRAMADOL HCL [Concomitant]
  17. CYMBALTA [Concomitant]
  18. TRAZODONE HCL [Concomitant]
  19. VENLAFAXINE HCL [Concomitant]
  20. FLUCONAZOLE [Concomitant]
  21. HYDROCODONE BITARTRATE + ACETAMINOPHEN [Concomitant]
  22. SULFACETAMIDE SODIUM [Concomitant]
  23. ERYTHROMYCIN /00020902/ (ERYTHROMYCIN STEARATE) [Concomitant]
  24. AZITHROMYCIN [Concomitant]
  25. CHERATUSSIN /01240701/ (CODEINE, GUAIFENESIN, PSEUDOEPHEDRINE) [Concomitant]
  26. DIAZEPAM [Concomitant]
  27. HYDROCORTONE [Concomitant]
  28. TRIMETHOBENZAMIDE (TRIMETHOBENZAMIDE) [Concomitant]
  29. CHLORAL HYDRATE (CHLORAL HYDRATE) [Concomitant]
  30. NYSTOP (NYSTATIN) [Concomitant]
  31. BISACODYL (BISACODYL) [Concomitant]

REACTIONS (30)
  - ABDOMINAL ADHESIONS [None]
  - ABDOMINAL PAIN [None]
  - AMENORRHOEA [None]
  - ANAEMIA [None]
  - BLOOD PRESSURE INCREASED [None]
  - BOWEL MOVEMENT IRREGULARITY [None]
  - COLD SWEAT [None]
  - CONSTIPATION [None]
  - CONVULSION [None]
  - DEPRESSION [None]
  - DYSARTHRIA [None]
  - FAECAL INCONTINENCE [None]
  - FALL [None]
  - FEELING ABNORMAL [None]
  - HEADACHE [None]
  - HYPERSOMNIA [None]
  - HYPOTHALAMO-PITUITARY DISORDER [None]
  - INSOMNIA [None]
  - LETHARGY [None]
  - MULTIPLE DRUG OVERDOSE [None]
  - NAUSEA [None]
  - OEDEMA PERIPHERAL [None]
  - PAIN IN EXTREMITY [None]
  - RESPIRATORY FAILURE [None]
  - ROAD TRAFFIC ACCIDENT [None]
  - SOMNOLENCE [None]
  - SYNCOPE [None]
  - TREMOR [None]
  - VISION BLURRED [None]
  - VOMITING [None]
